FAERS Safety Report 6245434-8 (Version None)
Quarter: 2009Q2

REPORT INFORMATION
  Report Type: 
  Country: None (occurrence: None)
  Receive Date: 20090625
  Receipt Date: 20090622
  Transmission Date: 20091009
  Serious: Yes (Hospitalization, Other)
  Sender: FDA-Public Use
  Company Number: GB-ASTRAZENECA-2009GB00522

PATIENT
  Age: 58 Year
  Sex: Female

DRUGS (7)
  1. QUETIAPINE MR [Suspect]
     Indication: SCHIZOPHRENIA
     Route: 048
     Dates: start: 20090215, end: 20090216
  2. QUETIAPINE MR [Suspect]
     Indication: HALLUCINATION
     Route: 048
     Dates: start: 20090215, end: 20090216
  3. QUETIAPINE MR [Suspect]
     Indication: PSYCHOTIC BEHAVIOUR
     Route: 048
     Dates: start: 20090215, end: 20090216
  4. STELAZINE [Concomitant]
     Route: 048
  5. SERTRALINE [Concomitant]
     Indication: DEPRESSION
     Route: 048
  6. PROCYCLIDINE HYDROCHLORIDE 2MG TAB [Concomitant]
     Route: 048
  7. NORTRIPTAN [Concomitant]
     Indication: MIGRAINE

REACTIONS (2)
  - LOSS OF CONSCIOUSNESS [None]
  - SOMNOLENCE [None]
